FAERS Safety Report 7680763-2 (Version None)
Quarter: 2011Q3

REPORT INFORMATION
  Report Type: 
  Country: None (occurrence: None)
  Receive Date: 20110812
  Receipt Date: 20110801
  Transmission Date: 20111222
  Serious: Yes (Hospitalization)
  Sender: FDA-Public Use
  Company Number: US-JNJFOC-20080202719

PATIENT
  Sex: Female
  Weight: 65.6 kg

DRUGS (12)
  1. INFLIXIMAB [Suspect]
     Dosage: 3RD DOSE
     Route: 042
     Dates: start: 20070124
  2. AZATHIOPRINE [Concomitant]
  3. INFLIXIMAB [Suspect]
     Route: 042
     Dates: start: 20061213
  4. PREDNISONE [Concomitant]
  5. ANTIBIOTIC [Concomitant]
  6. HUMIRA [Concomitant]
  7. INFLIXIMAB [Suspect]
     Dosage: 2ND DOSE
     Route: 042
     Dates: start: 20061227
  8. PREDNISONE [Concomitant]
  9. INFLIXIMAB [Suspect]
     Indication: CROHN'S DISEASE
     Dosage: 4TH DOSE
     Route: 042
     Dates: start: 20070725
  10. PREDNISONE [Concomitant]
  11. PREDNISONE [Concomitant]
  12. MESALAMINE [Concomitant]

REACTIONS (3)
  - CROHN'S DISEASE [None]
  - INTESTINAL OBSTRUCTION [None]
  - WOUND INFECTION [None]
